FAERS Safety Report 5198474-4 (Version None)
Quarter: 2007Q1

REPORT INFORMATION
  Report Type: 
  Country: None (occurrence: None)
  Receive Date: 20070104
  Receipt Date: 20061221
  Transmission Date: 20070707
  Serious: Yes (Hospitalization)
  Sender: FDA-Public Use
  Company Number: GR-ELI_LILLY_AND_COMPANY-GR200612003780

PATIENT
  Age: 60 Year
  Sex: Female

DRUGS (3)
  1. DULOXETINE HYDROCHLORIDE [Suspect]
     Indication: DEPRESSION
     Dosage: UNK, UNK
     Route: 048
     Dates: start: 20061001
  2. XANAX                                   /USA/ [Concomitant]
     Indication: DEPRESSION
     Dosage: 1 G, DAILY (1/D)
     Route: 048
  3. PRAZEPAM [Concomitant]
     Indication: DEPRESSION
     Route: 048

REACTIONS (6)
  - ANOREXIA [None]
  - ARRHYTHMIA [None]
  - DIZZINESS [None]
  - HEADACHE [None]
  - INSOMNIA [None]
  - TACHYCARDIA [None]
